FAERS Safety Report 10065688 (Version 2)
Quarter: 2014Q2

REPORT INFORMATION
  Report Type: Spontaneous
  Country: FR (occurrence: FR)
  Receive Date: 20140408
  Receipt Date: 20140408
  Transmission Date: 20141212
  Serious: Yes (Hospitalization)
  Sender: FDA-Public Use
  Company Number: FR-DSJP-DSM-2014-00160

PATIENT
  Sex: 0

DRUGS (5)
  1. AXELER 40 MG/ 10 MG [Suspect]
     Indication: HYPERTENSION
     Dosage: 40/10 MG
     Route: 048
  2. JANUMET [Suspect]
     Indication: TYPE 2 DIABETES MELLITUS
     Dosage: 100MG/2 G
     Route: 048
     Dates: end: 20140203
  3. NOVONORM [Suspect]
     Indication: TYPE 2 DIABETES MELLITUS
     Dosage: 1 MG, BID
     Route: 048
     Dates: end: 20140129
  4. DIAMICRON [Suspect]
     Indication: TYPE 2 DIABETES MELLITUS
     Route: 048
  5. GLUCOSAMINE [Suspect]
     Indication: OSTEOARTHRITIS
     Route: 048

REACTIONS (4)
  - Hepatic steatosis [Recovered/Resolved]
  - Diabetes mellitus inadequate control [Recovered/Resolved]
  - Angioedema [Recovered/Resolved]
  - Transaminases increased [Recovered/Resolved]
